FAERS Safety Report 9140562 (Version 1)
Quarter: 2013Q1

REPORT INFORMATION
  Report Type: Spontaneous
  Country: FR (occurrence: FR)
  Receive Date: 20130305
  Receipt Date: 20130305
  Transmission Date: 20140127
  Serious: Yes (Hospitalization)
  Sender: FDA-Public Use
  Company Number: FR-009507513-1302FRA011599

PATIENT
  Age: 72 Year
  Sex: Female

DRUGS (18)
  1. NORSET [Suspect]
     Dosage: 30 MG, QD
     Route: 048
     Dates: start: 201210
  2. NORSET [Suspect]
     Dosage: 15 MG, BID
     Route: 048
     Dates: start: 201211
  3. UMULINE [Suspect]
     Indication: TYPE 2 DIABETES MELLITUS
     Dosage: 32 IU, QD
     Route: 058
  4. UMULINE [Suspect]
     Dosage: 24 IU, QD
  5. IXPRIM (ACETAMINOPHEN (+) TRAMADOL HYDROCHLORIDE) [Suspect]
     Indication: BACK PAIN
     Dosage: 3 DF, QD
     Route: 048
     Dates: start: 201205
  6. ZITHROMAX [Suspect]
     Indication: LUNG DISORDER
     Dosage: 250 MG, QW
     Route: 048
  7. LASILIX [Concomitant]
     Dosage: 40 MG, UNKNOWN
  8. SYMBICORT [Concomitant]
  9. PROCORALAN [Concomitant]
  10. INEXIUM [Concomitant]
  11. ATARAX (ALPRAZOLAM) [Concomitant]
  12. EUPHYLLINE (THEOPHYLLINE) [Concomitant]
  13. HYDROCORTISONE [Concomitant]
  14. SERESTA [Concomitant]
  15. PERINDOPRIL [Concomitant]
  16. TRIMEBUTINE [Concomitant]
  17. DIFFU-K [Concomitant]
  18. CALCIDOSE [Concomitant]

REACTIONS (2)
  - Hypoglycaemia [Recovered/Resolved]
  - Convulsion [Recovered/Resolved]
